FAERS Safety Report 25189623 (Version 3)
Quarter: 2025Q4

REPORT INFORMATION
  Report Type: Spontaneous
  Country: EU (occurrence: EU)
  Receive Date: 20250411
  Receipt Date: 20251008
  Transmission Date: 20260118
  Serious: Yes (Hospitalization, Other)
  Sender: TEVA
  Company Number: EU-TEVA-VS-3319330

PATIENT
  Age: 10 Year
  Sex: Female

DRUGS (10)
  1. VINCRISTINE [Suspect]
     Active Substance: VINCRISTINE
     Indication: B precursor type acute leukaemia
     Dosage: 5 DOSES
     Route: 042
  2. DEXAMETHASONE [Concomitant]
     Active Substance: DEXAMETHASONE
     Indication: B precursor type acute leukaemia
     Route: 065
  3. DAUNORUBICIN [Concomitant]
     Active Substance: DAUNORUBICIN
     Indication: B precursor type acute leukaemia
     Dosage: 4 DOSES
     Route: 042
  4. MERCAPTOPURINE [Concomitant]
     Active Substance: MERCAPTOPURINE
     Indication: B precursor type acute leukaemia
     Route: 048
  5. PEGASPARGASE [Concomitant]
     Active Substance: PEGASPARGASE
     Indication: B precursor type acute leukaemia
     Dosage: 2 DOSES
     Route: 042
  6. METHOTREXATE [Concomitant]
     Active Substance: METHOTREXATE
     Indication: B precursor type acute leukaemia
     Route: 037
  7. FILGRASTIM [Suspect]
     Active Substance: FILGRASTIM
     Indication: Myelosuppression
     Route: 065
  8. ACYCLOVIR [Suspect]
     Active Substance: ACYCLOVIR
     Indication: Myelosuppression
     Dosage: TIME INTERVAL: 0.33333333 DAYS
     Route: 042
  9. CEFTAZIDIME [Concomitant]
     Active Substance: CEFTAZIDIME
     Indication: Product used for unknown indication
     Dosage: TIME INTERVAL: 0.33333333 DAYS
     Route: 042
  10. MEROPENEM [Concomitant]
     Active Substance: MEROPENEM
     Indication: Product used for unknown indication
     Dosage: TIME INTERVAL: 0.33333333 DAYS
     Route: 042

REACTIONS (2)
  - Polyneuropathy [Unknown]
  - Drug ineffective [Unknown]
